FAERS Safety Report 13725624 (Version 2)
Quarter: 2017Q3

REPORT INFORMATION
  Report Type: Report from Study
  Country: BR (occurrence: BR)
  Receive Date: 20170707
  Receipt Date: 20170721
  Transmission Date: 20171127
  Serious: Yes (Other)
  Sender: FDA-Public Use
  Company Number: PHHY2017BR074403

PATIENT
  Sex: Female
  Weight: 42 kg

DRUGS (5)
  1. EXJADE [Suspect]
     Active Substance: DEFERASIROX
     Indication: MINERAL SUPPLEMENTATION
  2. LEVOTHYROXINE. [Concomitant]
     Active Substance: LEVOTHYROXINE
     Indication: HYPERTHYROIDISM
     Dosage: 1 DF, QD
     Route: 048
  3. EXJADE [Suspect]
     Active Substance: DEFERASIROX
     Indication: ANAEMIA
     Dosage: 500 MG, QD (1 TABLET A DAY, FASTING)
     Route: 048
     Dates: start: 20160301
  4. CONCOR [Concomitant]
     Active Substance: BISOPROLOL FUMARATE
     Indication: ANGINA PECTORIS
  5. CONCOR [Concomitant]
     Active Substance: BISOPROLOL FUMARATE
     Indication: HYPERTENSION
     Dosage: 1 DF, QD
     Route: 048

REACTIONS (9)
  - Pneumonia [Recovering/Resolving]
  - Hypotension [Unknown]
  - Cough [Unknown]
  - Influenza [Recovering/Resolving]
  - Malaise [Unknown]
  - Chest pain [Unknown]
  - Weight decreased [Recovering/Resolving]
  - Fatigue [Unknown]
  - Back pain [Unknown]
